FAERS Safety Report 9783788 (Version 3)
Quarter: 2014Q1

REPORT INFORMATION
  Report Type: Report from Study
  Country: US (occurrence: US)
  Receive Date: 20131226
  Receipt Date: 20140123
  Transmission Date: 20141002
  Serious: Yes (Death, Life-Threatening, Hospitalization)
  Sender: FDA-Public Use
  Company Number: US-TEVA-453166USA

PATIENT
  Sex: Male
  Weight: 98.1 kg

DRUGS (11)
  1. ALLOPURINOL [Concomitant]
     Dosage: 200 MILLIGRAM DAILY;
     Route: 048
     Dates: start: 20130911
  2. ALLOPURINOL [Concomitant]
     Dosage: 300 MILLIGRAM DAILY;
     Route: 048
     Dates: start: 20130925
  3. ATORVASTATIN [Concomitant]
     Indication: HYPERLIPIDAEMIA
     Dosage: 80 MILLIGRAM DAILY; IN 1 HOUR OF SLEEP
     Route: 048
     Dates: start: 20130906
  4. DOCUSATE [Concomitant]
     Indication: CONSTIPATION
     Dosage: 100 MILLIGRAM DAILY;
     Route: 048
     Dates: start: 20130905
  5. FAMOTIDINE [Concomitant]
     Indication: DYSPEPSIA
     Route: 048
     Dates: start: 20130814
  6. FAMOTIDINE [Concomitant]
     Dates: start: 20130828
  7. BENDAMUSTINE [Suspect]
     Indication: MANTLE CELL LYMPHOMA
     Dosage: 432 MILLIGRAM DAILY;
     Route: 042
     Dates: start: 20130827, end: 20131126
  8. RITUXIMAB [Suspect]
     Indication: MANTLE CELL LYMPHOMA
     Dosage: 900 MILLIGRAM DAILY;
     Route: 042
     Dates: start: 20130827, end: 20131126
  9. IBRUTINIB/PLACEBO [Suspect]
     Indication: MANTLE CELL LYMPHOMA
     Dosage: 540 MILLIGRAM DAILY;
     Route: 048
     Dates: start: 20130827, end: 20131126
  10. ALLOPURINOL [Concomitant]
     Indication: GOUT
     Dosage: 600 MILLIGRAM DAILY;
     Route: 048
  11. ALLOPURINOL [Concomitant]
     Indication: TUMOUR LYSIS SYNDROME
     Dosage: 300 MILLIGRAM DAILY;
     Route: 048
     Dates: start: 20130828

REACTIONS (1)
  - Death [Fatal]
